FAERS Safety Report 4860155-1 (Version None)
Quarter: 2005Q4

REPORT INFORMATION
  Report Type: 
  Country: None (occurrence: None)
  Receive Date: 20051219
  Receipt Date: 20051208
  Transmission Date: 20060501
  Serious: Yes (Disabling)
  Sender: FDA-Public Use
  Company Number: US-ROCHE-428157

PATIENT
  Age: 87 Year
  Sex: Male
  Weight: 76.7 kg

DRUGS (12)
  1. TAMIFLU [Suspect]
     Route: 048
     Dates: start: 20050215, end: 20050220
  2. TAMIFLU [Suspect]
     Route: 048
     Dates: start: 20050221, end: 20050304
  3. ACETAMINOPHEN [Concomitant]
  4. CALCIUM/VITAMIN D [Concomitant]
     Dosage: REPORTED TO BE TAKEN DAILY
  5. DOCUSATE [Concomitant]
  6. MILK OF MAGNESIA TAB [Concomitant]
  7. RANITIDINE [Concomitant]
  8. SALSALATE [Concomitant]
  9. SENNA [Concomitant]
  10. SERTRALINE HCL [Concomitant]
  11. TERAZOSIN [Concomitant]
  12. WARFARIN [Concomitant]
     Dosage: CHRONIC WARFARIN THERAPY AT 1.5MG DAILY. FROM 22 FEBRUARY 2005 DOSE DECREASED TO 1MG DAILY.
     Dates: end: 20050303

REACTIONS (1)
  - INTERNATIONAL NORMALISED RATIO INCREASED [None]
